FAERS Safety Report 16101647 (Version 5)
Quarter: 2019Q2

REPORT INFORMATION
  Report Type: Report from Study
  Country: ES (occurrence: ES)
  Receive Date: 20190321
  Receipt Date: 20190506
  Transmission Date: 20190711
  Serious: Yes (Life-Threatening, Hospitalization)
  Sender: FDA-Public Use
  Company Number: ES-CELGENEUS-ESP-20190205103

PATIENT
  Age: 84 Year
  Sex: Female

DRUGS (8)
  1. ADIRO [Concomitant]
     Active Substance: ASPIRIN
     Indication: THROMBOSIS PROPHYLAXIS
     Dosage: 10 MILLIGRAM
     Route: 065
     Dates: start: 201901
  2. BLOOD [Concomitant]
     Active Substance: WHOLE BLOOD
     Indication: THROMBOCYTOPENIA
     Route: 050
  3. AZACITIDINE. [Suspect]
     Active Substance: AZACITIDINE
     Route: 058
     Dates: start: 20190222, end: 20190322
  4. ADIRO [Concomitant]
     Active Substance: ASPIRIN
     Indication: PERIPHERAL ISCHAEMIA
     Dosage: 100 MILLIGRAM
     Route: 048
     Dates: start: 20190111
  5. CLOPIDOGREL [Concomitant]
     Active Substance: CLOPIDOGREL BISULFATE
     Indication: THROMBOSIS PROPHYLAXIS
     Route: 065
  6. AZACITIDINE. [Suspect]
     Active Substance: AZACITIDINE
     Indication: ACUTE MYELOID LEUKAEMIA
     Route: 058
     Dates: start: 20181112, end: 20190208
  7. AMBISOME [Concomitant]
     Active Substance: AMPHOTERICIN B
     Indication: FUNGAL INFECTION
     Route: 065
     Dates: start: 20181107
  8. AMBISOME [Concomitant]
     Active Substance: AMPHOTERICIN B
     Dosage: 200 MILLIGRAM
     Route: 041
     Dates: start: 20181106, end: 20190225

REACTIONS (5)
  - Acute myocardial infarction [Not Recovered/Not Resolved]
  - Septic shock [Recovered/Resolved]
  - Lower respiratory tract infection fungal [Recovered/Resolved]
  - Acute pulmonary oedema [Not Recovered/Not Resolved]
  - Respiratory tract infection [Recovered/Resolved]

NARRATIVE: CASE EVENT DATE: 20181129
